FAERS Safety Report 10660311 (Version 1)
Quarter: 2014Q4

REPORT INFORMATION
  Report Type: Spontaneous
  Country: US (occurrence: US)
  Receive Date: 20141217
  Receipt Date: 20141217
  Transmission Date: 20150529
  Serious: No
  Sender: FDA-Public Use
  Company Number: US-GLAXOSMITHKLINE-A1083597A

PATIENT

DRUGS (1)
  1. VOTRIENT [Suspect]
     Active Substance: PAZOPANIB HYDROCHLORIDE
     Indication: PRODUCT USED FOR UNKNOWN INDICATION
     Dosage: 200 MG TABLETS. TAKE 800 MG AT THE SAME TIME DAILY ON AN EMPTY STOMACH (1 HOUR BEFORE OR 2 HOUR[...]
     Route: 048
     Dates: start: 20140523

REACTIONS (3)
  - Palmar erythema [Recovered/Resolved]
  - Skin irritation [Recovered/Resolved]
  - Burning sensation [Recovered/Resolved]
